FAERS Safety Report 23710385 (Version 1)
Quarter: 2024Q2

REPORT INFORMATION
  Report Type: Spontaneous
  Country: RO (occurrence: RO)
  Receive Date: 20240405
  Receipt Date: 20240405
  Transmission Date: 20240716
  Serious: Yes (Death, Other)
  Sender: FDA-Public Use
  Company Number: RO-TAKEDA-2024TUS032160

PATIENT
  Sex: Male

DRUGS (1)
  1. ALUNBRIG [Suspect]
     Active Substance: BRIGATINIB
     Indication: Non-small cell lung cancer
     Dosage: UNK
     Route: 065
     Dates: start: 202311, end: 20240401

REACTIONS (1)
  - Myocardial infarction [Fatal]

NARRATIVE: CASE EVENT DATE: 20240301
